FAERS Safety Report 5618314-6 (Version None)
Quarter: 2008Q1

REPORT INFORMATION
  Report Type: 
  Country: None (occurrence: None)
  Receive Date: 20080207
  Receipt Date: 20080130
  Transmission Date: 20080703
  Serious: Yes (Death)
  Sender: FDA-Public Use
  Company Number: US-AVENTIS-200810588US

PATIENT
  Sex: Male

DRUGS (1)
  1. KETEK [Suspect]
     Indication: BRONCHITIS
     Dosage: DOSE: 1 DOSE
     Route: 048
     Dates: start: 20050124, end: 20050125

REACTIONS (6)
  - DIPLOPIA [None]
  - DYSPNOEA [None]
  - RESPIRATORY ARREST [None]
  - RESPIRATORY FAILURE [None]
  - VISION BLURRED [None]
  - VISUAL DISTURBANCE [None]
